FAERS Safety Report 10072491 (Version 2)
Quarter: 2014Q2

REPORT INFORMATION
  Report Type: Spontaneous
  Country: US (occurrence: None)
  Receive Date: 20140409
  Receipt Date: 20140421
  Transmission Date: 20141212
  Serious: Yes (Hospitalization)
  Sender: FDA-Public Use
  Company Number: UCM201403-000038

PATIENT
  Age: 32 Year
  Sex: Male

DRUGS (8)
  1. DIVALPROEX SODIUM [Suspect]
  2. BENZTROPINE [Suspect]
  3. CITALOPRAM [Suspect]
  4. CHLORPROMAZINE [Suspect]
  5. HALOPERIDOL [Suspect]
     Dosage: 2 MG MORNING AND 5 MG AT BEDTIME
  6. HYDROXYZINE [Suspect]
     Indication: ANXIETY
  7. LEVOTHYROXINE [Suspect]
  8. ACETAMINOPHEN [Suspect]

REACTIONS (4)
  - Neuroleptic malignant syndrome [None]
  - Loss of consciousness [None]
  - Hypotension [None]
  - Arachnoid cyst [None]
